FAERS Safety Report 8523311-7 (Version None)
Quarter: 2012Q3

REPORT INFORMATION
  Report Type: 
  Country: None (occurrence: None)
  Receive Date: 20120706
  Receipt Date: 20120620
  Transmission Date: 20120928
  Serious: Yes (Hospitalization)
  Sender: FDA-Public Use
  Company Number: DSA_58036_2012

PATIENT
  Age: 55 Year
  Sex: Male

DRUGS (6)
  1. FLUCONAZOLE [Suspect]
     Indication: CNS VENTRICULITIS
     Dosage: 50 MG QD ORAL
     Route: 048
     Dates: start: 20111122, end: 20120604
  2. ATELEC (ATELEC-CILNIDIPINE) 10 MG (NOT SPECIFIED) [Suspect]
     Indication: HYPERTENSION
     Dosage: 10 MG QD ORAL
     Route: 048
     Dates: start: 20120201, end: 20120417
  3. AVAPRO [Suspect]
     Indication: HYPERTENSION
     Dosage: 100 MG BID ORAL; 100 MG BID ORAL
     Route: 048
     Dates: start: 20120605
  4. AVAPRO [Suspect]
     Indication: HYPERTENSION
     Dosage: 100 MG BID ORAL; 100 MG BID ORAL
     Route: 048
     Dates: start: 20111202, end: 20120511
  5. ENALAPRIL MALEATE [Suspect]
     Indication: HYPERTENSION
     Dosage: HYPERTENSION
     Dates: start: 20120101, end: 20120511
  6. LEVOTHYROXINE SODIUM [Suspect]
     Indication: TRI-IODOTHYRONINE DECREASED
     Dosage: 25 ?G QD ORAL
     Route: 048
     Dates: start: 20111202

REACTIONS (3)
  - DIABETIC NEPHROPATHY [None]
  - TUBULOINTERSTITIAL NEPHRITIS [None]
  - NEPHROTIC SYNDROME [None]
